FAERS Safety Report 8542147-4 (Version None)
Quarter: 2012Q3

REPORT INFORMATION
  Report Type: 
  Country: None (occurrence: None)
  Receive Date: 20120726
  Receipt Date: 20111013
  Transmission Date: 20120928
  Serious: No
  Sender: FDA-Public Use
  Company Number: US-ASTRAZENECA-2011SE61951

PATIENT
  Age: 56 Year
  Sex: Female
  Weight: 97.5 kg

DRUGS (7)
  1. CLONAZEPAM [Concomitant]
     Indication: ATTENTION DEFICIT/HYPERACTIVITY DISORDER
  2. SEROQUEL XR [Suspect]
     Indication: BIPOLAR DISORDER
     Route: 048
     Dates: start: 20060101
  3. DEXAMETHASONE [Concomitant]
     Indication: ATTENTION DEFICIT/HYPERACTIVITY DISORDER
  4. DEPAKOTE [Concomitant]
     Indication: ATTENTION DEFICIT/HYPERACTIVITY DISORDER
  5. SYNTHROID [Concomitant]
     Indication: HYPOTHYROIDISM
  6. SEROQUEL XR [Suspect]
     Route: 048
  7. ZOLPIDEM [Concomitant]
     Indication: ATTENTION DEFICIT/HYPERACTIVITY DISORDER

REACTIONS (6)
  - DRUG WITHDRAWAL SYNDROME [None]
  - IRRITABILITY [None]
  - INCORRECT DOSE ADMINISTERED [None]
  - DRUG DOSE OMISSION [None]
  - FEELING ABNORMAL [None]
  - INSOMNIA [None]
